FAERS Safety Report 9515229 (Version 1)
Quarter: 2013Q1

REPORT INFORMATION
  Report Type: Spontaneous
  Country: US (occurrence: None)
  Receive Date: 20130305
  Receipt Date: 20130305
  Transmission Date: 20140127
  Serious: Yes (Other)
  Sender: FDA-Public Use
  Company Number: 163-21880-12102970

PATIENT
  Age: 72 Year
  Sex: Male

DRUGS (15)
  1. REVLIMID [Suspect]
     Indication: MYELODYSPLASTIC SYNDROME
     Dates: start: 201102
  2. ARANESP (DARBEPOETIN ALFA) [Concomitant]
  3. COQ10 (UBIDECARENONE) [Concomitant]
  4. FISH OIL [Concomitant]
  5. FLOMAX [Concomitant]
  6. LEVOTHYROXINE [Concomitant]
  7. LIPITOR (ATORVASTATIN) [Concomitant]
  8. LISINOPRIL [Concomitant]
  9. OCUTABS (MULTIVITAMINS) [Concomitant]
  10. RISPERIDONE [Concomitant]
  11. PLAVIX (CLOPIDOGREL SUFATE) [Concomitant]
  12. HCTZ/TRIAMETERENE (DYAZIDE) [Concomitant]
  13. VITAMIN B12 (CYANOCOBALAMIN) [Concomitant]
  14. VITAMIN B6 (PYRIDOXINE HYDROCHLORIDE) [Concomitant]
  15. VITAMIN D3 (COLECALCIFEROL) [Concomitant]

REACTIONS (1)
  - Haematochezia [None]
